FAERS Safety Report 25896070 (Version 1)
Quarter: 2025Q4

REPORT INFORMATION
  Report Type: Spontaneous
  Country: US (occurrence: None)
  Receive Date: 20251007
  Receipt Date: 20251007
  Transmission Date: 20260117
  Serious: Yes (Disabling, Other)
  Sender: FDA-CTU
  Company Number: None

PATIENT
  Age: 98 Year
  Sex: Female
  Weight: 48.6 kg

DRUGS (22)
  1. RANOLAZINE [Suspect]
     Active Substance: RANOLAZINE
     Indication: Chest pain
     Dosage: OTHER QUANTITY : 1 TABLET(S);?FREQUENCY : TWICE A DAY;?
     Route: 048
     Dates: start: 20250927, end: 20251001
  2. TORSEMIDE [Concomitant]
     Active Substance: TORSEMIDE
  3. ALLOPURINOL [Concomitant]
     Active Substance: ALLOPURINOL
  4. DULOXETINE [Concomitant]
     Active Substance: DULOXETINE
  5. POTASSIUM CHLORIDE [Concomitant]
     Active Substance: POTASSIUM CHLORIDE
  6. ELIQUIS [Concomitant]
     Active Substance: APIXABAN
  7. ATENOLOL [Concomitant]
     Active Substance: ATENOLOL
  8. NITROGLYCERIN [Concomitant]
     Active Substance: NITROGLYCERIN
  9. VERAPAMIL [Concomitant]
     Active Substance: VERAPAMIL HYDROCHLORIDE
  10. TAFLUPROST [Concomitant]
     Active Substance: TAFLUPROST
  11. ARNUITY ELLIPTA [Concomitant]
     Active Substance: FLUTICASONE FUROATE
  12. SYNTHROID [Concomitant]
     Active Substance: LEVOTHYROXINE SODIUM
  13. VITAMIN B COMPLEX [Concomitant]
     Active Substance: CYANOCOBALAMIN\DEXPANTHENOL\NIACINAMIDE\PYRIDOXINE HYDROCHLORIDE\RIBOFLAVIN 5^-PHOSPHATE SODIUM\THIA
  14. ZINC [Concomitant]
     Active Substance: ZINC
  15. VITAMINS [Concomitant]
     Active Substance: VITAMINS
  16. VITAMIN D3 [Concomitant]
     Active Substance: CHOLECALCIFEROL
  17. METAMUCIL [Concomitant]
     Active Substance: PLANTAGO SEED
  18. ALIGN [Concomitant]
     Active Substance: BIFIDOBACTERIUM LONGUM SUBSP. INFANTIS
  19. TYLENOL [Concomitant]
     Active Substance: ACETAMINOPHEN
  20. MELATONIN [Concomitant]
     Active Substance: MELATONIN
  21. CETIRIZINE [Concomitant]
     Active Substance: CETIRIZINE HYDROCHLORIDE
  22. Senocot [Concomitant]

REACTIONS (6)
  - Restless legs syndrome [None]
  - Asthenia [None]
  - Tonic clonic movements [None]
  - Tremor [None]
  - Bedridden [None]
  - Dysstasia [None]

NARRATIVE: CASE EVENT DATE: 20250930
